FAERS Safety Report 7546700-6 (Version None)
Quarter: 2011Q2

REPORT INFORMATION
  Report Type: 
  Country: None (occurrence: None)
  Receive Date: 20110614
  Receipt Date: 20110526
  Transmission Date: 20111010
  Serious: Yes (Other)
  Sender: FDA-Public Use
  Company Number: A0835257A

PATIENT
  Age: 88 Year
  Sex: Male

DRUGS (1)
  1. AVANDIA [Suspect]
     Indication: DIABETES MELLITUS
     Dosage: 4MG TWICE PER DAY
     Route: 048
     Dates: start: 20070201, end: 20070601

REACTIONS (7)
  - ANGINA PECTORIS [None]
  - MYOCARDIAL INFARCTION [None]
  - PRURITUS [None]
  - CORONARY ARTERY DISEASE [None]
  - PNEUMONIA [None]
  - OEDEMA [None]
  - DRUG HYPERSENSITIVITY [None]
